FAERS Safety Report 4611430-7 (Version None)
Quarter: 2005Q2

REPORT INFORMATION
  Report Type: 
  Country: None (occurrence: None)
  Receive Date: 20050311
  Receipt Date: 20041117
  Transmission Date: 20051028
  Serious: No
  Sender: FDA-Public Use
  Company Number: 2004-BP-12227BP

PATIENT
  Age: 34 Year
  Sex: Female
  Weight: 83.9 kg

DRUGS (8)
  1. SPIRIVA [Suspect]
     Indication: ASTHMA
     Dosage: 18 MCG (18 MCG), IH
     Route: 055
     Dates: start: 20040721
  2. SPIRIVA [Suspect]
     Indication: BRONCHITIS
  3. SINGULAIR (MONTELUKAST) [Concomitant]
  4. ALBUTEROL [Concomitant]
  5. FLOVENT [Concomitant]
  6. VIAC [Concomitant]
  7. PROTONIX [Concomitant]
  8. ALBUTEROL/IPRATROPIUM NEBULIZER (SALBUTAMOL W/ IPRATROPIUM) [Concomitant]

REACTIONS (4)
  - PHARYNGOLARYNGEAL PAIN [None]
  - RESPIRATORY TRACT IRRITATION [None]
  - STOMATITIS [None]
  - THROAT IRRITATION [None]
